FAERS Safety Report 4281080-3 (Version None)
Quarter: 2004Q1

REPORT INFORMATION
  Report Type: 
  Country: None (occurrence: None)
  Receive Date: 20040123
  Receipt Date: 20030718
  Transmission Date: 20041129
  Serious: Yes (Death)
  Sender: FDA-Public Use
  Company Number: HQWYE133322JUL03

PATIENT
  Sex: Male

DRUGS (3)
  1. CORDARONE [Suspect]
     Indication: VENTRICULAR ARRHYTHMIA
  2. AMIODARONE HCL [Suspect]
  3. PACERONE [Suspect]
     Indication: VENTRICULAR ARRHYTHMIA

REACTIONS (2)
  - LIVER DISORDER [None]
  - PULMONARY TOXICITY [None]
